FAERS Safety Report 7755512-X (Version None)
Quarter: 2011Q3

REPORT INFORMATION
  Report Type: 
  Country: None (occurrence: None)
  Receive Date: 20110825
  Receipt Date: 20110708
  Transmission Date: 20111222
  Serious: No
  Sender: FDA-Public Use
  Company Number: 332750

PATIENT
  Age: 42 Year
  Sex: Female
  Weight: 85.3 kg

DRUGS (2)
  1. METFORMIN HCL [Concomitant]
  2. VICTOZA [Suspect]
     Indication: PRODUCT USED FOR UNKNOWN INDICATION
     Dosage: , SUBCUTANEOUS
     Route: 058
     Dates: start: 20110606

REACTIONS (3)
  - WEIGHT DECREASED [None]
  - INJECTION SITE URTICARIA [None]
  - BLOOD GLUCOSE INCREASED [None]
